FAERS Safety Report 23643342 (Version 1)
Quarter: 2024Q1

REPORT INFORMATION
  Report Type: Spontaneous
  Country: ES (occurrence: ES)
  Receive Date: 20240318
  Receipt Date: 20240318
  Transmission Date: 20240410
  Serious: Yes (Disabling, Other)
  Sender: FDA-Public Use
  Company Number: None

PATIENT
  Age: 57 Year
  Sex: Female
  Weight: 89 kg

DRUGS (6)
  1. SYNJARDY [Suspect]
     Active Substance: EMPAGLIFLOZIN\METFORMIN HYDROCHLORIDE
     Indication: Diabetes mellitus
     Dosage: 1 TABLET
     Dates: start: 20180730
  2. SYNJARDY [Suspect]
     Active Substance: EMPAGLIFLOZIN\METFORMIN HYDROCHLORIDE
     Dates: start: 20161214, end: 20180111
  3. OZEMPIC 0,5 MG SOLUCION INYECTABLE EN PLUMA PRECARGADA [Concomitant]
     Indication: Product used for unknown indication
     Dosage: 1 DOSE OF 0.5MG
     Dates: start: 20190930, end: 20200217
  4. TRULICITY 1,5 mg SOLUCION INYECTABLE EN PLUMA PRECARGADA [Concomitant]
     Indication: Diabetes mellitus
     Dosage: 1 CARTRIDGE/PEN EVERY 7 DAYS
     Dates: start: 20161214, end: 20190930
  5. TRULICITY 1,5 mg SOLUCION INYECTABLE EN PLUMA PRECARGADA [Concomitant]
     Dates: start: 20200217
  6. TOUJEO 300 UNIDADES/ML SOLOSTAR SOLUCION INYECTABLE EN PLUMA [Concomitant]
     Indication: Product used for unknown indication
     Dosage: AT BREAKFAST
     Dates: start: 20201116

REACTIONS (2)
  - Leg amputation [Recovered/Resolved with Sequelae]
  - Diabetic foot [Recovering/Resolving]

NARRATIVE: CASE EVENT DATE: 20170728
